FAERS Safety Report 10125984 (Version 1)
Quarter: 2014Q2

REPORT INFORMATION
  Report Type: Spontaneous
  Country: CA (occurrence: CA)
  Receive Date: 20140427
  Receipt Date: 20140427
  Transmission Date: 20141212
  Serious: Yes (Hospitalization)
  Sender: FDA-Public Use
  Company Number: CA-BRISTOL-MYERS SQUIBB COMPANY-20645008

PATIENT
  Age: 76 Year
  Sex: Male

DRUGS (4)
  1. ELIQUIS [Suspect]
     Indication: CEREBROVASCULAR ACCIDENT PROPHYLAXIS
  2. AMIODARONE [Concomitant]
  3. PANTOLOC [Concomitant]
  4. IMITREX [Concomitant]

REACTIONS (1)
  - Oesophageal carcinoma [Unknown]
